FAERS Safety Report 6045610-3 (Version None)
Quarter: 2009Q1

REPORT INFORMATION
  Report Type: 
  Country: None (occurrence: None)
  Receive Date: 20090121
  Receipt Date: 20090109
  Transmission Date: 20090719
  Serious: Yes (Disabling)
  Sender: FDA-Public Use
  Company Number: CH-ROCHE-607433

PATIENT
  Sex: Female
  Weight: 58 kg

DRUGS (4)
  1. BONIVA [Suspect]
     Indication: OSTEOPOROSIS
     Route: 048
     Dates: start: 20070901
  2. FLUIMUCIL [Suspect]
     Indication: OSTEOPOROSIS
     Route: 048
  3. MIANSERIN [Concomitant]
     Indication: SLEEP DISORDER
     Dosage: FREQUENCY : 1/8 TO 1/6 TABLET DAILY.
     Route: 048
     Dates: start: 19960101
  4. CALCIUM SANDOZ [Concomitant]
     Indication: OSTEOPOROSIS
     Route: 048

REACTIONS (2)
  - CATARACT [None]
  - VISUAL IMPAIRMENT [None]
